FAERS Safety Report 18723589 (Version 1)
Quarter: 2021Q1

REPORT INFORMATION
  Report Type: Spontaneous
  Country: US (occurrence: US)
  Receive Date: 20210108
  Receipt Date: 20210108
  Transmission Date: 20210419
  Serious: Yes (Hospitalization)
  Sender: FDA-Public Use
  Company Number: None

PATIENT
  Age: 60 Year
  Sex: Female

DRUGS (2)
  1. SOLU?CORTEF [Suspect]
     Active Substance: HYDROCORTISONE SODIUM SUCCINATE
     Indication: B-CELL LYMPHOMA
     Route: 042
     Dates: start: 202007
  2. RUXIENCE [Suspect]
     Active Substance: RITUXIMAB-PVVR
     Indication: B-CELL LYMPHOMA
     Route: 042
     Dates: start: 202007

REACTIONS (1)
  - Cholecystectomy [None]

NARRATIVE: CASE EVENT DATE: 20200816
